FAERS Safety Report 8988285 (Version 5)
Quarter: 2013Q2

REPORT INFORMATION
  Report Type: Report from Study
  Country: RU (occurrence: RU)
  Receive Date: 20121227
  Receipt Date: 20130619
  Transmission Date: 20140414
  Serious: Yes (Hospitalization)
  Sender: FDA-Public Use
  Company Number: RU-ROCHE-1169034

PATIENT
  Age: 31 Year
  Sex: Female
  Weight: 57.2 kg

DRUGS (15)
  1. BLINDED TOCILIZUMAB [Suspect]
     Indication: RHEUMATOID ARTHRITIS
     Dosage: DATE OF MOST RECENT DOSE: 25/JAN/2012
     Route: 058
     Dates: start: 20111020
  2. TOCILIZUMAB [Suspect]
     Indication: RHEUMATOID ARTHRITIS
     Dosage: DATE OF MOST RECENT DOSE : 15/NOV/2012
     Route: 058
     Dates: start: 20120207
  3. METHOTREXATE [Concomitant]
     Indication: RHEUMATOID ARTHRITIS
     Route: 048
     Dates: start: 201006, end: 201009
  4. METHOTREXATE [Concomitant]
     Route: 048
     Dates: start: 20120419
  5. METHOTREXATE [Concomitant]
     Route: 048
     Dates: start: 20121025, end: 20121121
  6. FOLATE [Concomitant]
     Indication: RHEUMATOID ARTHRITIS
     Route: 048
     Dates: start: 201006
  7. NIMESULIDE [Concomitant]
     Indication: RHEUMATOID ARTHRITIS
     Route: 048
     Dates: start: 201105
  8. DIPROSPAN [Concomitant]
     Indication: RHEUMATOID ARTHRITIS
     Route: 014
     Dates: start: 201103, end: 201103
  9. CEFAZOLIN [Concomitant]
     Route: 030
     Dates: start: 20121126, end: 20121211
  10. ESSENTIALE N [Concomitant]
     Route: 042
     Dates: start: 20121201, end: 20121206
  11. LEVOFLOXACIN [Concomitant]
     Route: 042
     Dates: start: 20121205, end: 20121211
  12. LEVOFLOXACIN [Concomitant]
     Route: 048
     Dates: start: 20121212, end: 20121215
  13. METRONIDAZOLE [Concomitant]
     Route: 042
     Dates: start: 20121205, end: 20121212
  14. METRONIDAZOLE [Concomitant]
     Route: 048
     Dates: start: 20121212, end: 20121215
  15. ESSENTIALE FORTE [Concomitant]
     Route: 048
     Dates: start: 20121212, end: 20130306

REACTIONS (1)
  - Lymphadenitis [Recovered/Resolved]
